FAERS Safety Report 20895664 (Version 1)
Quarter: 2022Q2

REPORT INFORMATION
  Report Type: Spontaneous
  Country: US (occurrence: US)
  Receive Date: 20220531
  Receipt Date: 20220531
  Transmission Date: 20220721
  Serious: No
  Sender: FDA-Public Use
  Company Number: US-CELGENE-USA-20220102399

PATIENT
  Age: 66 Year
  Sex: Female

DRUGS (2)
  1. POMALYST [Suspect]
     Active Substance: POMALIDOMIDE
     Indication: Plasma cell myeloma
     Dosage: 2 MILLIGRAM
     Route: 048
     Dates: start: 20210426
  2. POMALYST [Suspect]
     Active Substance: POMALIDOMIDE
     Indication: Plasma cell myeloma in remission
     Dosage: 2 MILLIGRAM
     Route: 048
     Dates: start: 20210714

REACTIONS (8)
  - Cystitis [Recovered/Resolved]
  - Gingival bleeding [Unknown]
  - Bone deformity [Unknown]
  - Dry skin [Unknown]
  - Pruritus [Unknown]
  - Urinary tract infection [Unknown]
  - Fatigue [Unknown]
  - Abdominal pain [Unknown]
